FAERS Safety Report 14019201 (Version 4)
Quarter: 2018Q1

REPORT INFORMATION
  Report Type: Report from Study
  Country: US (occurrence: US)
  Receive Date: 20170928
  Receipt Date: 20180130
  Transmission Date: 20180508
  Serious: Yes (Hospitalization, Other)
  Sender: FDA-Public Use
  Company Number: US-BAYER-2017-180782

PATIENT
  Age: 86 Year
  Sex: Male

DRUGS (4)
  1. NEXAVAR [Suspect]
     Active Substance: SORAFENIB
     Indication: HEPATOCELLULAR CARCINOMA
     Dosage: 600 MG DAILY
     Route: 048
     Dates: start: 20170815
  2. NEXAVAR [Suspect]
     Active Substance: SORAFENIB
     Indication: HEPATOCELLULAR CARCINOMA
     Dosage: 600 MG DAILY, 2 TAB IN MORNING AND 1 AT NIGHT
     Route: 048
  3. NEXAVAR [Suspect]
     Active Substance: SORAFENIB
     Indication: HEPATOCELLULAR CARCINOMA
     Dosage: 4 TABLETS DAILY
     Route: 048
  4. NEXAVAR [Suspect]
     Active Substance: SORAFENIB
     Indication: DEEP VEIN THROMBOSIS
     Dosage: 400 MG, BID
     Route: 048

REACTIONS (6)
  - Blood glucose decreased [None]
  - Chest pain [None]
  - Malaise [None]
  - Hospitalisation [None]
  - Fall [None]
  - Off label use [None]

NARRATIVE: CASE EVENT DATE: 20180112
